FAERS Safety Report 22279601 (Version 1)
Quarter: 2023Q2

REPORT INFORMATION
  Report Type: Spontaneous
  Country: ES (occurrence: ES)
  Receive Date: 20230503
  Receipt Date: 20230503
  Transmission Date: 20230722
  Serious: Yes (Other)
  Sender: FDA-Public Use
  Company Number: None

PATIENT

DRUGS (3)
  1. ABACAVIR [Suspect]
     Active Substance: ABACAVIR
     Indication: Product used for unknown indication
     Dosage: UNK
     Route: 065
     Dates: start: 20230329, end: 20230330
  2. RALTEGRAVIR [Concomitant]
     Active Substance: RALTEGRAVIR
     Indication: Product used for unknown indication
     Dosage: UNK
     Route: 065
  3. NEVIRAPINE [Concomitant]
     Active Substance: NEVIRAPINE
     Indication: Product used for unknown indication
     Dosage: UNK
     Route: 065

REACTIONS (3)
  - Lactic acidosis [Recovered/Resolved]
  - Encephalopathy [Recovered/Resolved]
  - Electrocardiogram ST segment elevation [Recovered/Resolved]

NARRATIVE: CASE EVENT DATE: 20230330
